FAERS Safety Report 18575217 (Version 1)
Quarter: 2020Q4

REPORT INFORMATION
  Report Type: Spontaneous
  Country: CN (occurrence: CN)
  Receive Date: 20201203
  Receipt Date: 20201203
  Transmission Date: 20210114
  Serious: Yes (Other)
  Sender: FDA-Public Use
  Company Number: CN-PFIZER INC-2020471928

PATIENT
  Age: 28 Year
  Sex: Male
  Weight: 65 kg

DRUGS (1)
  1. ZOLOFT [Suspect]
     Active Substance: SERTRALINE HYDROCHLORIDE
     Indication: ANTIDEPRESSANT THERAPY
     Dosage: 50 UG, 1X/DAY
     Route: 048
     Dates: start: 20200811, end: 20200815

REACTIONS (2)
  - Palpitations [Unknown]
  - Heart disease congenital [Recovered/Resolved]

NARRATIVE: CASE EVENT DATE: 2020
